FAERS Safety Report 21549364 (Version 4)
Quarter: 2024Q3

REPORT INFORMATION
  Report Type: Spontaneous
  Country: US (occurrence: US)
  Receive Date: 20221103
  Receipt Date: 20240819
  Transmission Date: 20241017
  Serious: No
  Sender: PFIZER
  Company Number: US-PFIZER INC-202201269365

PATIENT
  Age: 72 Year
  Sex: Female
  Weight: 68.04 kg

DRUGS (2)
  1. DEPO-ESTRADIOL [Suspect]
     Active Substance: ESTRADIOL CYPIONATE
     Indication: Hysterectomy
     Dosage: UNK, MONTHLY (1 CC ONCE A MONTH, TAKES 1 CC AND GOT WHATEVER WAS LEFT IN THE BOTTLE AND GOT 0.5CC)
     Route: 030
     Dates: start: 1986, end: 2022
  2. DEPO-ESTRADIOL [Suspect]
     Active Substance: ESTRADIOL CYPIONATE
     Indication: Hormone replacement therapy

REACTIONS (3)
  - Hot flush [Recovering/Resolving]
  - Insomnia [Recovering/Resolving]
  - Underdose [Unknown]

NARRATIVE: CASE EVENT DATE: 20220101
